FAERS Safety Report 4603707-6 (Version None)
Quarter: 2005Q1

REPORT INFORMATION
  Report Type: 
  Country: None (occurrence: None)
  Receive Date: 20050310
  Receipt Date: 20050118
  Transmission Date: 20050727
  Serious: Yes (Hospitalization)
  Sender: FDA-Public Use
  Company Number: 200510203JP

PATIENT
  Age: 72 Year
  Sex: Male
  Weight: 50 kg

DRUGS (10)
  1. KETEK [Suspect]
     Indication: BRONCHITIS
     Route: 048
     Dates: start: 20041030, end: 20041031
  2. BRUFEN [Concomitant]
     Indication: BRONCHITIS ACUTE
     Dates: start: 20041030, end: 20041031
  3. MUCODYNE [Concomitant]
     Indication: BRONCHITIS ACUTE
     Route: 048
     Dates: start: 20041030, end: 20041031
  4. THEO-DUR [Concomitant]
     Indication: ASTHMA
     Dates: start: 20040712
  5. IPD [Concomitant]
     Indication: ASTHMA
     Route: 048
     Dates: start: 20000725
  6. LANDEL [Concomitant]
     Indication: HYPERTENSION
     Dates: start: 20000725, end: 20041101
  7. LOCHOL [Concomitant]
     Indication: HYPERLIPIDAEMIA
     Dates: start: 20000523
  8. HOKUNALIN [Concomitant]
     Indication: ASTHMA
     Dates: start: 20000919
  9. MEPTIN [Concomitant]
     Indication: ASTHMA
     Route: 055
     Dates: start: 20000613
  10. QVAR 40 [Concomitant]
     Indication: ASTHMA
     Route: 055
     Dates: start: 20021102

REACTIONS (3)
  - CEREBROVASCULAR DISORDER [None]
  - DEPRESSED LEVEL OF CONSCIOUSNESS [None]
  - HYPOGLYCAEMIA [None]
